FAERS Safety Report 16397201 (Version 1)
Quarter: 2019Q2

REPORT INFORMATION
  Report Type: Spontaneous
  Country: GB (occurrence: GB)
  Receive Date: 20190606
  Receipt Date: 20190606
  Transmission Date: 20190711
  Serious: Yes (Hospitalization)
  Sender: FDA-Public Use
  Company Number: GB-ACCORD-131406

PATIENT
  Age: 55 Year
  Sex: Male
  Weight: 75 kg

DRUGS (5)
  1. CLARITHROMYCIN/CLARITHROMYCIN LACTOBIONATE [Suspect]
     Active Substance: CLARITHROMYCIN LACTOBIONATE
     Indication: PRODUCT USED FOR UNKNOWN INDICATION
     Dates: start: 20190402
  2. CLONAZEPAM. [Interacting]
     Active Substance: CLONAZEPAM
     Indication: PRODUCT USED FOR UNKNOWN INDICATION
  3. FENTANYL/FENTANYL CITRATE [Interacting]
     Active Substance: FENTANYL
     Indication: PAIN
     Dosage: 25MCG/HOUR
     Route: 062
     Dates: start: 20190312
  4. BACLOFEN. [Concomitant]
     Active Substance: BACLOFEN
  5. MODAFINIL. [Concomitant]
     Active Substance: MODAFINIL

REACTIONS (2)
  - Somnolence [Recovering/Resolving]
  - Labelled drug-drug interaction medication error [Unknown]

NARRATIVE: CASE EVENT DATE: 20190408
